FAERS Safety Report 9319650 (Version 7)
Quarter: 2015Q3

REPORT INFORMATION
  Report Type: Spontaneous
  Country: US (occurrence: US)
  Receive Date: 20130530
  Receipt Date: 20150904
  Transmission Date: 20151125
  Serious: Yes (Other)
  Sender: FDA-Public Use
  Company Number: US-GLAXOSMITHKLINE-A1019338A

PATIENT

DRUGS (7)
  1. FLOLAN [Suspect]
     Active Substance: EPOPROSTENOL SODIUM
     Dosage: UNK
     Dates: start: 19990907
  2. COUMADIN [Concomitant]
     Active Substance: WARFARIN SODIUM
  3. LASIX [Concomitant]
     Active Substance: FUROSEMIDE
  4. FLOLAN [Suspect]
     Active Substance: EPOPROSTENOL SODIUM
     Indication: PULMONARY ARTERIAL HYPERTENSION
     Dosage: 22 NG/KG/MIN, 1.5 MG VIAL STRENGTH, 30,000 NG/ML CONCENTRATION, PUMP RATE 73 ML/DAY.
     Route: 042
     Dates: start: 19990907
  5. REVATIO [Concomitant]
     Active Substance: SILDENAFIL CITRATE
  6. FLOLAN [Suspect]
     Active Substance: EPOPROSTENOL SODIUM
     Dosage: 15NG/KG/MIN CONTINUOUSLY
     Dates: start: 19990907
  7. FLOLAN [Suspect]
     Active Substance: EPOPROSTENOL SODIUM
     Dosage: 15 NG/KG/MIN, 1.5 MG VIAL STRENGTH, 30,000 NG/ML CONCENTRATION, PUMP RATE 73 ML/DAY.
     Route: 042

REACTIONS (5)
  - Weight decreased [Recovered/Resolved]
  - Aphonia [Recovered/Resolved]
  - Malaise [Recovered/Resolved]
  - Anaemia [Recovered/Resolved]
  - Pneumonia [Recovering/Resolving]
